FAERS Safety Report 6651071-3 (Version None)
Quarter: 2010Q1

REPORT INFORMATION
  Report Type: 
  Country: None (occurrence: None)
  Receive Date: 20100325
  Receipt Date: 20100315
  Transmission Date: 20100710
  Serious: Yes (Other)
  Sender: FDA-Public Use
  Company Number: US-PFIZER INC-2010033541

PATIENT
  Sex: Female
  Weight: 108.84 kg

DRUGS (9)
  1. CHANTIX [Suspect]
     Indication: SMOKING CESSATION THERAPY
     Dosage: 0.5 MG, 1X/DAY
     Route: 048
     Dates: start: 20080101
  2. CHANTIX [Suspect]
     Dosage: UNK
     Dates: start: 20100307
  3. FUROSEMIDE [Concomitant]
     Indication: HYPERTENSION
     Dosage: 20 MG, 2X/DAY
  4. ABILIFY [Concomitant]
     Indication: BIPOLAR DISORDER
     Dosage: 20 MG, 1X/DAY
     Route: 048
  5. WELLBUTRIN [Concomitant]
     Indication: BIPOLAR DISORDER
     Dosage: 150 MG, 2X/DAY
     Route: 048
  6. TRAZODONE [Concomitant]
     Indication: BIPOLAR DISORDER
     Dosage: 150MG TO 300MG AS NEEDED
  7. IBUPROFEN [Concomitant]
     Indication: ARTHRITIS
     Dosage: 800 MG, 3X/DAY
  8. TRAMADOL [Concomitant]
     Indication: ARTHRITIS
     Dosage: 50 MG, 1 TO 2 TABLETS AS NEEDED
  9. ISOSORBIDE [Concomitant]
     Indication: ANGINA PECTORIS
     Dosage: 10 MG, 2X/DAY

REACTIONS (1)
  - POLYDIPSIA [None]
